FAERS Safety Report 24310454 (Version 2)
Quarter: 2025Q1

REPORT INFORMATION
  Report Type: Report from Study
  Country: US (occurrence: US)
  Receive Date: 20240912
  Receipt Date: 20250301
  Transmission Date: 20250409
  Serious: Yes (Hospitalization)
  Sender: ABBVIE
  Company Number: US-ABBVIE-5914125

PATIENT
  Sex: Female

DRUGS (2)
  1. SKYRIZI [Suspect]
     Active Substance: RISANKIZUMAB-RZAA
     Indication: Psoriasis
     Route: 058
     Dates: start: 20230317
  2. SKYRIZI [Suspect]
     Active Substance: RISANKIZUMAB-RZAA
     Route: 058
     Dates: start: 20230316, end: 20230316

REACTIONS (5)
  - Arthropod sting [Unknown]
  - Pain [Not Recovered/Not Resolved]
  - Injection site reaction [Unknown]
  - Therapeutic response shortened [Not Recovered/Not Resolved]
  - Fatigue [Unknown]
